FAERS Safety Report 4644518-5 (Version None)
Quarter: 2005Q2

REPORT INFORMATION
  Report Type: 
  Country: None (occurrence: None)
  Receive Date: 20050426
  Receipt Date: 20050414
  Transmission Date: 20051028
  Serious: Yes (Disabling)
  Sender: FDA-Public Use
  Company Number: US-JNJFOC-20050403473

PATIENT
  Sex: Male
  Weight: 81.65 kg

DRUGS (4)
  1. REMICADE [Suspect]
     Indication: ANKYLOSING SPONDYLITIS
     Route: 042
  2. IMURAN [Concomitant]
  3. PAIN KILLERS [Concomitant]
  4. INDOCIN [Concomitant]

REACTIONS (2)
  - HYPOAESTHESIA [None]
  - LOSS OF CONTROL OF LEGS [None]
